FAERS Safety Report 11239777 (Version 1)
Quarter: 2015Q3

REPORT INFORMATION
  Report Type: Other
  Country: US (occurrence: US)
  Receive Date: 20150706
  Receipt Date: 20150706
  Transmission Date: 20151125
  Serious: Yes (Hospitalization)
  Sender: FDA-Public Use
  Company Number: US-LUPIN PHARMACEUTICALS INC.-2015-01420

PATIENT
  Age: 60 Year
  Sex: Male

DRUGS (3)
  1. TRAZODONE [Suspect]
     Active Substance: TRAZODONE HYDROCHLORIDE
     Indication: DEPRESSION
     Dosage: 100MG
     Route: 048
  2. METHYLENE BLUE. [Suspect]
     Active Substance: METHYLENE BLUE
     Indication: VASOPLEGIA SYNDROME
     Dosage: 1-MG/KG BOLUS FOLLOWED BY CONTINUOUS INFUSION OF 0.5 MG/KG PER HOUR
     Route: 042
  3. ESCITALOPRAM [Suspect]
     Active Substance: ESCITALOPRAM OXALATE
     Indication: DEPRESSION
     Dosage: 20MG
     Route: 048

REACTIONS (1)
  - Serotonin syndrome [Recovered/Resolved]
